FAERS Safety Report 21601145 (Version 1)
Quarter: 2022Q4

REPORT INFORMATION
  Report Type: Spontaneous
  Country: GR (occurrence: GR)
  Receive Date: 20221116
  Receipt Date: 20221116
  Transmission Date: 20230113
  Serious: Yes (Other)
  Sender: FDA-Public Use
  Company Number: GR-SUN PHARMACEUTICAL INDUSTRIES LTD-2020R1-250338

PATIENT
  Age: 20 Year
  Sex: Female

DRUGS (1)
  1. ISOTRETINOIN [Suspect]
     Active Substance: ISOTRETINOIN
     Indication: Anogenital warts
     Dosage: 1 MILLIGRAM/KILOGRAM, DAILY
     Route: 048

REACTIONS (1)
  - Erythema nodosum [Recovered/Resolved]
